FAERS Safety Report 5165569-0 (Version None)
Quarter: 2006Q4

REPORT INFORMATION
  Report Type: 
  Country: None (occurrence: None)
  Receive Date: 20061206
  Receipt Date: 20061202
  Transmission Date: 20070319
  Serious: Yes (Hospitalization)
  Sender: FDA-Public Use
  Company Number: BR-GLAXOSMITHKLINE-A0630340A

PATIENT
  Age: 54 Year
  Sex: Female

DRUGS (2)
  1. AMOXIL [Suspect]
     Indication: VIRAL INFECTION
     Dosage: 500MG THREE TIMES PER DAY
     Route: 048
  2. BROMAZEPAM [Concomitant]
     Dosage: 6MG PER DAY
     Route: 048

REACTIONS (2)
  - EPISTAXIS [None]
  - HYPOTHERMIA [None]
